FAERS Safety Report 7611901-5 (Version None)
Quarter: 2011Q3

REPORT INFORMATION
  Report Type: 
  Country: None (occurrence: None)
  Receive Date: 20110715
  Receipt Date: 20110704
  Transmission Date: 20111222
  Serious: Yes (Hospitalization)
  Sender: FDA-Public Use
  Company Number: CA-JNJFOC-20110702156

PATIENT
  Sex: Male
  Weight: 99 kg

DRUGS (4)
  1. CALCIUM CARBONATE [Concomitant]
  2. ASACOL [Concomitant]
  3. VITAMIN D [Concomitant]
  4. REMICADE [Suspect]
     Indication: CROHN'S DISEASE
     Route: 042
     Dates: start: 20091115

REACTIONS (3)
  - DEHYDRATION [None]
  - SYNCOPE [None]
  - DIZZINESS [None]
